FAERS Safety Report 4511685-3 (Version None)
Quarter: 2004Q4

REPORT INFORMATION
  Report Type: 
  Country: None (occurrence: None)
  Receive Date: 20041123
  Receipt Date: 20041123
  Transmission Date: 20050328
  Serious: Yes (Hospitalization)
  Sender: FDA-Public Use
  Company Number: None

PATIENT
  Sex: Female
  Weight: 22.5 kg

DRUGS (3)
  1. METRONIDAZOLE [Suspect]
     Indication: CLOSTRIDIUM BACTERAEMIA
     Dosage: 200 MG EVERY 6 HOURS IV
     Route: 042
     Dates: start: 20040720, end: 20040725
  2. D5-1/2 BS [Concomitant]
  3. KCL TAB [Concomitant]

REACTIONS (4)
  - AGITATION [None]
  - HALLUCINATION [None]
  - PSYCHIATRIC SYMPTOM [None]
  - STRESS SYMPTOMS [None]
